FAERS Safety Report 7794279-6 (Version None)
Quarter: 2011Q4

REPORT INFORMATION
  Report Type: 
  Country: None (occurrence: None)
  Receive Date: 20111004
  Receipt Date: 20110923
  Transmission Date: 20120403
  Serious: Yes (Hospitalization)
  Sender: FDA-Public Use
  Company Number: HK-BAYER-2011-087877

PATIENT
  Age: 79 Year
  Sex: Female

DRUGS (14)
  1. SORAFENIB (RAF KINASE INHIBITOR) [Suspect]
     Dosage: 400 MG, QD
     Route: 048
     Dates: start: 20100517, end: 20110807
  2. NORVASC [Concomitant]
     Indication: HYPERTENSION
     Dosage: 10 MG, QD
     Route: 048
     Dates: start: 20100324
  3. MODURETIC 5-50 [Concomitant]
     Indication: HYPERTENSION
     Dosage: 1 TABLET DAILY
     Route: 048
     Dates: start: 20080716
  4. MINIPRESS [Concomitant]
     Indication: HYPERTENSION
     Dosage: 1 MG, BID
     Route: 048
     Dates: start: 20101125
  5. ALDOMET [Concomitant]
     Indication: HYPERTENSION
     Dosage: 125 MG, BID
     Route: 048
     Dates: start: 20110906
  6. MULTI-VITAMIN [Concomitant]
     Indication: VITAMIN SUPPLEMENTATION
     Dosage: 1 TABLET DAILY
     Route: 048
     Dates: start: 20091224
  7. SORAFENIB (RAF KINASE INHIBITOR) [Suspect]
     Indication: HEPATIC NEOPLASM MALIGNANT
     Dosage: 400 MG, BID
     Route: 048
     Dates: start: 20100318, end: 20100421
  8. DIAMICRON [Concomitant]
     Indication: DIABETES MELLITUS
     Dosage: 120 MG, BID
     Route: 048
     Dates: start: 20080521
  9. ENTECAVIR [Concomitant]
     Indication: CHRONIC HEPATITIS
     Dosage: 0.5 MG, QD
     Route: 048
     Dates: start: 20100210
  10. SORAFENIB (RAF KINASE INHIBITOR) [Suspect]
     Dosage: 400 MG, QOD (DAILY DOSE: 200 MG)
     Route: 048
     Dates: start: 20110808, end: 20110913
  11. METFORMIN HCL [Concomitant]
     Indication: DIABETES MELLITUS
     Dosage: 250 MG, TID
     Route: 048
     Dates: start: 20080521
  12. ATENOLOL [Concomitant]
     Indication: HYPERTENSION
     Dosage: 100 MG, QD
     Route: 048
     Dates: start: 20100428
  13. NEXIUM [Concomitant]
     Indication: ABDOMINAL PAIN UPPER
     Dosage: 40 MG, QD
     Route: 048
     Dates: start: 20100422
  14. ZESTRIL [Concomitant]
     Indication: HYPERTENSION
     Dosage: 20 MG, QD
     Route: 048
     Dates: start: 20110120

REACTIONS (1)
  - GOUTY ARTHRITIS [None]
